FAERS Safety Report 8249952-2 (Version None)
Quarter: 2012Q2

REPORT INFORMATION
  Report Type: 
  Country: None (occurrence: None)
  Receive Date: 20120402
  Receipt Date: 20120322
  Transmission Date: 20120825
  Serious: Yes (Death)
  Sender: FDA-Public Use
  Company Number: JP-JNJFOC-20110610693

PATIENT
  Sex: Female
  Weight: 50 kg

DRUGS (11)
  1. RHEUMATREX [Suspect]
     Indication: RHEUMATOID ARTHRITIS
     Route: 048
     Dates: start: 20080507, end: 20110331
  2. REMICADE [Suspect]
     Indication: RHEUMATOID ARTHRITIS
     Route: 042
     Dates: start: 20110304
  3. STEROIDS NOS [Concomitant]
     Route: 065
  4. REMICADE [Suspect]
     Route: 042
     Dates: start: 20091116
  5. FOLIC ACID [Concomitant]
     Indication: PROPHYLAXIS
     Route: 048
  6. REMICADE [Suspect]
     Route: 042
     Dates: end: 20110109
  7. REMICADE [Suspect]
     Route: 042
     Dates: start: 20101210
  8. REMICADE [Suspect]
     Route: 042
     Dates: start: 20100820
  9. ALENDRONATE SODIUM [Concomitant]
     Indication: PROPHYLAXIS
     Route: 048
  10. REMICADE [Suspect]
     Route: 042
     Dates: start: 20090223
  11. PREDNISOLONE [Suspect]
     Indication: RHEUMATOID ARTHRITIS
     Route: 048

REACTIONS (4)
  - PNEUMOCYSTIS JIROVECI PNEUMONIA [None]
  - CYTOMEGALOVIRUS HEPATITIS [None]
  - PANCYTOPENIA [None]
  - PNEUMONIA CYTOMEGALOVIRAL [None]
